FAERS Safety Report 6434389-9 (Version None)
Quarter: 2009Q4

REPORT INFORMATION
  Report Type: 
  Country: None (occurrence: None)
  Receive Date: 20091110
  Receipt Date: 20081017
  Transmission Date: 20100525
  Serious: No
  Sender: FDA-Public Use
  Company Number: US-ASTRAZENECA-2009UW15772

PATIENT
  Age: 93 Year
  Sex: Female
  Weight: 74.8 kg

DRUGS (1)
  1. PRILOSEC OTC [Suspect]
     Indication: ERUCTATION
     Dosage: UNK DOSE, 1 /DAY FOR 60 DAYS
     Route: 048
     Dates: start: 20080817, end: 20081016

REACTIONS (1)
  - BLOOD GLUCOSE INCREASED [None]
